FAERS Safety Report 9817335 (Version 1)
Quarter: 2014Q1

REPORT INFORMATION
  Report Type: Report from Study
  Country: US (occurrence: US)
  Receive Date: 20140115
  Receipt Date: 20140115
  Transmission Date: 20141002
  Serious: Yes (Hospitalization, Other)
  Sender: FDA-Public Use
  Company Number: US-009507513-1401USA004412

PATIENT
  Age: 6 Year
  Sex: Female
  Weight: 16.7 kg

DRUGS (7)
  1. VORINOSTAT [Suspect]
     Indication: NEUROBLASTOMA
     Dosage: 130 MG, QD
     Route: 048
     Dates: start: 20131120, end: 20131203
  2. IOBENGUANE I 131 [Suspect]
     Indication: NEUROBLASTOMA
     Dosage: 327 MCI, ONCE
     Route: 042
     Dates: start: 20131122, end: 20131122
  3. PEPCID [Concomitant]
     Indication: GASTROINTESTINAL DISORDER
     Dosage: 8 MG, BID
     Route: 048
     Dates: start: 20130827
  4. BACTRIM [Concomitant]
     Indication: PROPHYLAXIS
     Dosage: 40 MG, BIW
     Dates: start: 20130807
  5. MIRALAX [Concomitant]
     Indication: CONSTIPATION
     Dosage: 8.5 MG, BID, PRN
     Route: 048
     Dates: start: 20130827
  6. AMLODIPINE [Concomitant]
     Indication: BLOOD PRESSURE
     Dosage: 8 MG, BID
     Dates: start: 20131120
  7. ONDANSETRON HYDROCHLORIDE [Concomitant]
     Indication: ANTIEMETIC SUPPORTIVE CARE
     Dosage: 4 MG, PRN
     Dates: start: 20130827

REACTIONS (2)
  - Febrile neutropenia [Recovered/Resolved with Sequelae]
  - Pyrexia [Recovered/Resolved with Sequelae]
